FAERS Safety Report 4366159-X (Version None)
Quarter: 2004Q2

REPORT INFORMATION
  Report Type: 
  Country: None (occurrence: None)
  Receive Date: 20040524
  Receipt Date: 20031205
  Transmission Date: 20050107
  Serious: Yes (Death, Hospitalization)
  Sender: FDA-Public Use
  Company Number: 2001071022IT

PATIENT
  Age: 68 Year
  Sex: Female
  Weight: 89.2 kg

DRUGS (5)
  1. CAMPTOSAR [Suspect]
     Indication: COLON CANCER
     Dosage: 180 MG/M2, CYCLIC, IV
     Route: 042
     Dates: start: 20010411, end: 20010801
  2. FLUOROURACIL [Suspect]
     Indication: COLON CANCER
     Dosage: 1536 UNK, CYCLIC, IV BOLUS; 2304 UNK, CYCLIC, IV
     Route: 040
     Dates: start: 20010411, end: 20010801
  3. FLUOROURACIL [Suspect]
     Indication: COLON CANCER
     Dosage: 1536 UNK, CYCLIC, IV BOLUS; 2304 UNK, CYCLIC, IV
     Route: 040
     Dates: start: 20010411, end: 20010801
  4. LEUCOVORIN CALCIUM [Suspect]
     Indication: COLON CANCER
     Dosage: 384 MG, CYCLIC
     Dates: start: 20010411, end: 20010801
  5. NORVASC [Concomitant]

REACTIONS (7)
  - BRONCHOSPASM [None]
  - DEEP VEIN THROMBOSIS [None]
  - DIARRHOEA [None]
  - HAEMOGLOBIN DECREASED [None]
  - PLATELET COUNT DECREASED [None]
  - PULMONARY EMBOLISM [None]
  - SINUS TACHYCARDIA [None]
